FAERS Safety Report 6937792-3 (Version None)
Quarter: 2010Q3

REPORT INFORMATION
  Report Type: 
  Country: None (occurrence: None)
  Receive Date: 20100820
  Receipt Date: 20100820
  Transmission Date: 20110219
  Serious: Yes (Other)
  Sender: FDA-Public Use
  Company Number: None

PATIENT
  Sex: Female
  Weight: 60.3284 kg

DRUGS (1)
  1. METFORMIN-GLIMEPIRIDE [Suspect]
     Indication: DIABETES MELLITUS
     Dosage: 1 TAB 1 DAY
     Dates: start: 20050101, end: 20100101

REACTIONS (10)
  - ALOPECIA [None]
  - ARTHRALGIA [None]
  - DIZZINESS [None]
  - DYSKINESIA [None]
  - FEELING DRUNK [None]
  - GASTROOESOPHAGEAL REFLUX DISEASE [None]
  - HEADACHE [None]
  - ILLUSION [None]
  - MYALGIA [None]
  - PAIN IN EXTREMITY [None]
